FAERS Safety Report 5446399-9 (Version None)
Quarter: 2007Q3

REPORT INFORMATION
  Report Type: 
  Country: None (occurrence: None)
  Receive Date: 20070907
  Receipt Date: 20070827
  Transmission Date: 20080115
  Serious: Yes (Death, Hospitalization)
  Sender: FDA-Public Use
  Company Number: NL-ROCHE-513428

PATIENT
  Age: 66 Year
  Sex: Male

DRUGS (7)
  1. CAPECITABINE [Suspect]
     Dosage: STRENGTH: 150 MG/ 500 MG PER PROTOCOL.
     Route: 048
     Dates: start: 20061020
  2. BEVACIZUMAB [Suspect]
     Route: 042
     Dates: start: 20061020
  3. OXALIPLATIN [Suspect]
     Route: 042
     Dates: start: 20061020
  4. CETUXIMAB [Suspect]
     Dosage: DAILY DOSE: 480 (X3) MG.
     Route: 042
     Dates: start: 20061120
  5. ASCAL [Concomitant]
  6. SELEKTINE [Concomitant]
  7. FOSINOPRIL SODIUM [Concomitant]

REACTIONS (2)
  - DIARRHOEA [None]
  - PULMONARY EMBOLISM [None]
